FAERS Safety Report 8581801-5 (Version None)
Quarter: 2012Q3

REPORT INFORMATION
  Report Type: 
  Country: None (occurrence: None)
  Receive Date: 20120809
  Receipt Date: 20120803
  Transmission Date: 20120928
  Serious: Yes (Other)
  Sender: FDA-Public Use
  Company Number: PHHY2012JP063944

PATIENT
  Age: 42 Year
  Sex: Female

DRUGS (4)
  1. CYCLOSPORINE [Suspect]
     Indication: PUSTULAR PSORIASIS
     Dosage: 4 MG/KG, DAILY
     Dates: start: 20100601
  2. BETAMETHASONE DIPROPIONATE [Concomitant]
     Indication: PUSTULAR PSORIASIS
     Route: 061
  3. CYCLOSPORINE [Suspect]
     Dosage: 3 MG/KG, DAILY
  4. CYCLOSPORINE [Suspect]
     Dosage: 5 MG/KG, DAILY
     Dates: end: 20100601

REACTIONS (5)
  - RASH PUSTULAR [None]
  - LIVER DISORDER [None]
  - ALANINE AMINOTRANSFERASE INCREASED [None]
  - PYREXIA [None]
  - ASPARTATE AMINOTRANSFERASE INCREASED [None]
